FAERS Safety Report 7224926-9 (Version None)
Quarter: 2011Q1

REPORT INFORMATION
  Report Type: 
  Country: None (occurrence: None)
  Receive Date: 20110113
  Receipt Date: 20110104
  Transmission Date: 20110831
  Serious: Yes (Hospitalization)
  Sender: FDA-Public Use
  Company Number: NL-ROCHE-752614

PATIENT
  Sex: Male

DRUGS (2)
  1. MITOMYCIN [Suspect]
     Dosage: 5 MINUTE BOLUS INJECTION, ON DAY 1.
     Route: 040
  2. CAPECITABINE [Suspect]
     Dosage: 2+/- 1 HOUR BEFORE RADIOTHERAPY
     Route: 048

REACTIONS (5)
  - DEHYDRATION [None]
  - NAUSEA [None]
  - BLOOD GLUCOSE FLUCTUATION [None]
  - FATIGUE [None]
  - HYPERKALAEMIA [None]
